FAERS Safety Report 5052985-0 (Version None)
Quarter: 2006Q3

REPORT INFORMATION
  Report Type: 
  Country: None (occurrence: None)
  Receive Date: 20060711
  Receipt Date: 20060619
  Transmission Date: 20061208
  Serious: Yes (Hospitalization)
  Sender: FDA-Public Use
  Company Number: FR200606004453

PATIENT
  Age: 78 Year
  Sex: Female

DRUGS (11)
  1. PROZAC [Suspect]
     Indication: DEPRESSION
     Dosage: 20 MG DAILY (1/D) ORAL
     Route: 048
     Dates: start: 20040101, end: 20060418
  2. ARTOTEC   (DICLOFENAC SODIUM, MISOPROSTOL) [Concomitant]
  3. BECONASE [Concomitant]
  4. COZAAR [Concomitant]
  5. OROCAL      (CALCIUM CARBONATE) [Concomitant]
  6. FENOFIBRATE [Concomitant]
  7. OMEPRAZOLE [Concomitant]
  8. VALIUM [Concomitant]
  9. PRAXILENE      (NAFTIDROFORYL OXALATE) [Concomitant]
  10. VENTOLIN [Concomitant]
  11. DI-ANTALVIC    (DEXTROPROPOXYPHENE HYDROCHLORIDE) [Concomitant]

REACTIONS (4)
  - HAEMODIALYSIS [None]
  - HAEMOLYTIC URAEMIC SYNDROME [None]
  - RENAL FAILURE [None]
  - THROMBOTIC MICROANGIOPATHY [None]
